FAERS Safety Report 5055403-1 (Version None)
Quarter: 2006Q3

REPORT INFORMATION
  Report Type: 
  Country: None (occurrence: None)
  Receive Date: 20060718
  Receipt Date: 20060718
  Transmission Date: 20061208
  Serious: Yes (Hospitalization)
  Sender: FDA-Public Use
  Company Number: None

PATIENT
  Age: 55 Year
  Sex: Male

DRUGS (12)
  1. FUROSEMIDE [Suspect]
     Indication: HYPERTENSION
     Dosage: 60 MG BID
     Dates: start: 19970601
  2. AMIODARONE HCL [Concomitant]
  3. DIGOXIN [Concomitant]
  4. FOSINOPRIIL [Concomitant]
  5. HYDRALAZINE HCL [Concomitant]
  6. LORTAB [Concomitant]
  7. ISOSORBIDE DINITRATE [Concomitant]
  8. METOPROLOL TARTRATE [Concomitant]
  9. OMEPRAZOLE [Concomitant]
  10. SPIRONOLACTONE [Concomitant]
  11. RISPERDAL [Concomitant]
  12. ASPIRIN [Concomitant]

REACTIONS (1)
  - HYPOKALAEMIA [None]
